FAERS Safety Report 16732353 (Version 3)
Quarter: 2019Q4

REPORT INFORMATION
  Report Type: Spontaneous
  Country: US (occurrence: US)
  Receive Date: 20190822
  Receipt Date: 20191107
  Transmission Date: 20200122
  Serious: Yes (Other)
  Sender: FDA-Public Use
  Company Number: US-ASTRAZENECA-2019SF09226

PATIENT
  Age: 58 Year
  Sex: Male
  Weight: 72.6 kg

DRUGS (4)
  1. BYETTA [Suspect]
     Active Substance: EXENATIDE
     Indication: TYPE 2 DIABETES MELLITUS
     Route: 058
     Dates: start: 2008, end: 20190724
  2. METFORMIN [Concomitant]
     Active Substance: METFORMIN HYDROCHLORIDE
  3. BYDUREON [Suspect]
     Active Substance: EXENATIDE
     Dosage: UNKNOWN DOSE, ONCE A WEEK
     Route: 058
  4. TOUJEO [Concomitant]
     Active Substance: INSULIN GLARGINE

REACTIONS (12)
  - Blood glucose decreased [Unknown]
  - Injection site pain [Recovered/Resolved]
  - Blindness unilateral [Unknown]
  - Eye infection [Unknown]
  - Blood pressure increased [Unknown]
  - Eye haemorrhage [Unknown]
  - Drug ineffective [Unknown]
  - Injection site bruising [Recovered/Resolved]
  - Intentional product misuse [Unknown]
  - Malaise [Recovered/Resolved]
  - Device issue [Unknown]
  - Weight decreased [Unknown]

NARRATIVE: CASE EVENT DATE: 2008
